FAERS Safety Report 18598651 (Version 2)
Quarter: 2020Q4

REPORT INFORMATION
  Report Type: Spontaneous
  Country: US (occurrence: US)
  Receive Date: 20201210
  Receipt Date: 20201229
  Transmission Date: 20210114
  Serious: Yes (Other)
  Sender: FDA-Public Use
  Company Number: US-AUROBINDO-AUR-APL-2020-059610

PATIENT
  Age: 65 Year

DRUGS (1)
  1. PHENYTOIN CAPSULES [Suspect]
     Active Substance: PHENYTOIN
     Indication: EPILEPSY
     Dosage: 5 DOSAGE FORM, TWO TIMES A DAY (2 IN MORNING AND 3 AT NIGHT (2 CAPSULES MORNING/3 AT NIGHT)
     Route: 065

REACTIONS (3)
  - Product substitution issue [Unknown]
  - Seizure [Unknown]
  - Drug ineffective [Unknown]
